FAERS Safety Report 7339073-5 (Version None)
Quarter: 2011Q1

REPORT INFORMATION
  Report Type: 
  Country: None (occurrence: None)
  Receive Date: 20110308
  Receipt Date: 20110301
  Transmission Date: 20110831
  Serious: Yes (Hospitalization)
  Sender: FDA-Public Use
  Company Number: DE-PFIZER INC-2011044009

PATIENT
  Age: 55 Year
  Sex: Male

DRUGS (2)
  1. SUTENT [Suspect]
     Indication: METASTATIC RENAL CELL CARCINOMA
     Dosage: UNK
     Dates: start: 20100927, end: 20110222
  2. ZOMETA [Concomitant]
     Dosage: 4 MG EVERY 4 WEEKS
     Dates: start: 20110101

REACTIONS (1)
  - PLEURAL EFFUSION [None]
